FAERS Safety Report 13486698 (Version 2)
Quarter: 2017Q3

REPORT INFORMATION
  Report Type: Spontaneous
  Country: CA (occurrence: CA)
  Receive Date: 20170426
  Receipt Date: 20170802
  Transmission Date: 20171127
  Serious: Yes (Hospitalization)
  Sender: FDA-Public Use
  Company Number: CA-SA-2017SA072466

PATIENT
  Age: 80 Year
  Sex: Female
  Weight: 90.7 kg

DRUGS (9)
  1. ASAPHEN [Concomitant]
     Active Substance: ASPIRIN
     Route: 048
     Dates: start: 2010
  2. METFORMIN [Concomitant]
     Active Substance: METFORMIN HYDROCHLORIDE
     Route: 065
  3. PRO-METFORMIN [Suspect]
     Active Substance: METFORMIN HYDROCHLORIDE
     Indication: TYPE 2 DIABETES MELLITUS
     Dosage: THERAPY DURATION: 7.0 YEAR(S)
     Route: 048
     Dates: end: 20150828
  4. PRO-METFORMIN [Suspect]
     Active Substance: METFORMIN HYDROCHLORIDE
     Indication: TYPE 2 DIABETES MELLITUS
     Route: 048
  5. HYDROCHLOROTHIAZIDE/IRBESARTAN [Suspect]
     Active Substance: HYDROCHLOROTHIAZIDE\IRBESARTAN
     Indication: HYPERTENSION
     Dosage: DOSE AND DAILY DOSE: 150-12.5 MG PER DAY (DIE)
     Route: 048
  6. NOVOLIN GE NPH [Concomitant]
     Active Substance: INSULIN BEEF
     Dosage: FORM:SUSPENSION SUBCUTANEOUS?52UNITS AM AND 50UNITS AT DINNER
     Route: 058
  7. HYDROCHLOROTHIAZIDE/IRBESARTAN [Suspect]
     Active Substance: HYDROCHLOROTHIAZIDE\IRBESARTAN
     Indication: HYPERTENSION
     Dosage: THERAPY DURATION: 7.0 YEAR(S)?DOSE AND DAILY DOSE: 150-12.5 MG PER DAY (DIE)
     Route: 048
     Dates: end: 20150828
  8. ONGLYZA [Concomitant]
     Active Substance: SAXAGLIPTIN HYDROCHLORIDE
     Route: 065
     Dates: end: 20150828
  9. ROSUVASTATIN. [Concomitant]
     Active Substance: ROSUVASTATIN
     Route: 048
     Dates: start: 2010

REACTIONS (6)
  - Vomiting [Recovered/Resolved]
  - Pancreatitis acute [Recovered/Resolved]
  - Abdominal discomfort [Recovered/Resolved]
  - Abdominal pain [Recovered/Resolved]
  - Lipase increased [Recovered/Resolved]
  - Asthenia [Recovered/Resolved]
